FAERS Safety Report 23284493 (Version 1)
Quarter: 2023Q4

REPORT INFORMATION
  Report Type: Spontaneous
  Country: CZ (occurrence: CZ)
  Receive Date: 20231211
  Receipt Date: 20231211
  Transmission Date: 20240109
  Serious: Yes (Hospitalization)
  Sender: FDA-Public Use
  Company Number: CZ-EMA-DD-20180607-faizanevprod-085740

PATIENT
  Age: 42 Year
  Sex: Male

DRUGS (7)
  1. CYCLOPHOSPHAMIDE [Suspect]
     Active Substance: CYCLOPHOSPHAMIDE
     Indication: Non-Hodgkin^s lymphoma
     Dosage: DOSAGE FORM: UNSPECIFIED
     Route: 065
     Dates: start: 200707
  2. DOXORUBICIN [Suspect]
     Active Substance: DOXORUBICIN
     Indication: Non-Hodgkin^s lymphoma
     Dosage: DOSAGE FORM: LIPOSOME INJECTION
     Route: 065
     Dates: start: 200707
  3. PREDNISOLONE [Suspect]
     Active Substance: PREDNISOLONE
     Indication: Non-Hodgkin^s lymphoma
     Dosage: DOSAGE FORM: UNSPECIFIED
     Route: 065
     Dates: start: 200707
  4. RITUXIMAB [Suspect]
     Active Substance: RITUXIMAB
     Indication: Non-Hodgkin^s lymphoma
     Dosage: DOSAGE FORM: UNSPECIFIED
     Route: 065
     Dates: start: 200707
  5. VINCRISTINE [Suspect]
     Active Substance: VINCRISTINE
     Indication: Non-Hodgkin^s lymphoma
     Dosage: DOSAGE FORM: UNSPECIFIED
     Route: 065
     Dates: start: 200707
  6. HUMAN HEPATITIS B VIRUS IMMUNE GLOBULIN [Concomitant]
     Active Substance: HUMAN HEPATITIS B VIRUS IMMUNE GLOBULIN
     Indication: Prophylaxis
     Dosage: UNK
     Route: 065
  7. TENOFOVIR [Concomitant]
     Active Substance: TENOFOVIR
     Indication: Prophylaxis
     Dosage: UNK
     Route: 065

REACTIONS (4)
  - Jaundice [Recovered/Resolved]
  - Hepatitis B [Recovered/Resolved]
  - Hepatic encephalopathy [Recovered/Resolved]
  - Acute hepatic failure [Recovered/Resolved]

NARRATIVE: CASE EVENT DATE: 20080401
